FAERS Safety Report 4509232-5 (Version None)
Quarter: 2004Q4

REPORT INFORMATION
  Report Type: 
  Country: None (occurrence: None)
  Receive Date: 20041025
  Receipt Date: 20040629
  Transmission Date: 20050328
  Serious: Yes (Other)
  Sender: FDA-Public Use
  Company Number: US-JNJFOC-20040701418

PATIENT
  Age: 56 Year
  Sex: Male
  Weight: 108.8633 kg

DRUGS (9)
  1. REMICADE [Suspect]
     Indication: CROHN'S DISEASE
     Dosage: 6 VIALS
     Dates: start: 20031001
  2. PREDNISONE [Concomitant]
  3. PENTASA [Concomitant]
  4. NEXIUM [Concomitant]
  5. LOPERAMIDE (LOPERAMIDE HYDROCHLORIDE) UNSPECIFIED [Concomitant]
  6. NITRO TAB (GLYCERL TRINITRATE) [Concomitant]
  7. TRICORE (FENOFIBRATE) [Concomitant]
  8. AVANDIA [Concomitant]
  9. AVANDIA [Concomitant]

REACTIONS (3)
  - PRURITUS [None]
  - PYREXIA [None]
  - SYSTEMIC LUPUS ERYTHEMATOSUS [None]
